FAERS Safety Report 21700962 (Version 1)
Quarter: 2022Q4

REPORT INFORMATION
  Report Type: Spontaneous
  Country: US (occurrence: US)
  Receive Date: 20221208
  Receipt Date: 20221208
  Transmission Date: 20230113
  Serious: Yes (Other)
  Sender: FDA-Public Use
  Company Number: US-TEVA-2022-US-2832620

PATIENT
  Age: 75 Year
  Sex: Male

DRUGS (9)
  1. LENALIDOMIDE [Suspect]
     Active Substance: LENALIDOMIDE
     Indication: Plasma cell myeloma
     Dosage: ADDITIONAL INFO: ACTION TAKEN: THE THERAPY WAS INTERRUPTED AND THEN CONTINUED , 15 MG
     Route: 065
  2. PREDNISONE [Suspect]
     Active Substance: PREDNISONE
     Indication: Rash
     Dosage: 10 MILLIGRAM DAILY;
     Route: 048
  3. PREDNISONE [Suspect]
     Active Substance: PREDNISONE
     Dosage: 5 MILLIGRAM DAILY;
     Route: 048
  4. PREDNISONE [Suspect]
     Active Substance: PREDNISONE
     Dosage: 5 MG
     Route: 048
  5. TRIAMCINOLONE [Suspect]
     Active Substance: TRIAMCINOLONE
     Indication: Rash
     Dosage: TRIAMCINOLONE: 0.10 %
     Route: 061
  6. CARFILZOMIB [Concomitant]
     Active Substance: CARFILZOMIB
     Indication: Plasma cell myeloma
     Route: 065
  7. DEXAMETHASONE [Concomitant]
     Active Substance: DEXAMETHASONE
     Indication: Plasma cell myeloma
     Dosage: 20 MG
     Route: 065
  8. CLOBETASOL [Concomitant]
     Active Substance: CLOBETASOL
     Indication: Rash
     Dosage: CLOBETASOL: 0.05 % , SPRAY
     Route: 065
  9. TACROLIMUS [Concomitant]
     Active Substance: TACROLIMUS
     Indication: Rash
     Dosage: TACROLIMUS: 0.10 %
     Route: 065

REACTIONS (2)
  - Drug eruption [Recovered/Resolved]
  - Drug ineffective [Unknown]
